FAERS Safety Report 26085160 (Version 2)
Quarter: 2025Q4

REPORT INFORMATION
  Report Type: Report from Study
  Country: GB (occurrence: GB)
  Receive Date: 20251125
  Receipt Date: 20251216
  Transmission Date: 20260118
  Serious: Yes (Other)
  Sender: ABBVIE
  Company Number: GB-ABBVIE-6559670

PATIENT
  Sex: Male

DRUGS (1)
  1. HUMIRA [Suspect]
     Active Substance: ADALIMUMAB
     Indication: Ankylosing spondylitis
     Dosage: 2 PRE-FILLED DISPOSABLE INJECTION, FOA: SOLUTION FOR INJECTION IN PRE-FILLED PEN
     Route: 058

REACTIONS (2)
  - Bladder neoplasm [Unknown]
  - Nasopharyngitis [Unknown]
